FAERS Safety Report 20844818 (Version 3)
Quarter: 2022Q2

REPORT INFORMATION
  Report Type: Spontaneous
  Country: DE (occurrence: DE)
  Receive Date: 20220518
  Receipt Date: 20220622
  Transmission Date: 20220721
  Serious: Yes (Death, Hospitalization, Other)
  Sender: FDA-Public Use
  Company Number: DE-GILEAD-2022-0581621

PATIENT
  Age: 55 Year
  Sex: Female
  Weight: 57 kg

DRUGS (1)
  1. YESCARTA [Suspect]
     Active Substance: AXICABTAGENE CILOLEUCEL
     Indication: Central nervous system lymphoma
     Dosage: UNK
     Route: 065
     Dates: start: 20220509

REACTIONS (1)
  - Central nervous system lymphoma [Fatal]

NARRATIVE: CASE EVENT DATE: 20220512
